FAERS Safety Report 8125275-7 (Version None)
Quarter: 2012Q1

REPORT INFORMATION
  Report Type: 
  Country: None (occurrence: None)
  Receive Date: 20120209
  Receipt Date: 20120131
  Transmission Date: 20120608
  Serious: Yes (Other)
  Sender: FDA-Public Use
  Company Number: US-ELI_LILLY_AND_COMPANY-US201202000348

PATIENT
  Sex: Male

DRUGS (1)
  1. GEMZAR [Suspect]
     Dosage: 1640 MG, UNKNOWN
     Dates: start: 20110214

REACTIONS (2)
  - HOSPICE CARE [None]
  - REFRACTORY CANCER [None]
